FAERS Safety Report 10906197 (Version 1)
Quarter: 2015Q1

REPORT INFORMATION
  Report Type: Report from Study
  Country: CA (occurrence: CA)
  Receive Date: 20150311
  Receipt Date: 20150311
  Transmission Date: 20150721
  Serious: Yes (Hospitalization, Other)
  Sender: FDA-Public Use
  Company Number: CA-ABBVIE-15K-028-1347807-00

PATIENT
  Age: 59 Year
  Sex: Male
  Weight: 90.8 kg

DRUGS (2)
  1. HUMIRA [Suspect]
     Active Substance: ADALIMUMAB
     Route: 058
     Dates: start: 201409
  2. HUMIRA [Suspect]
     Active Substance: ADALIMUMAB
     Indication: CROHN^S DISEASE
     Route: 058
     Dates: start: 20120424, end: 201409

REACTIONS (5)
  - Drug ineffective [Recovered/Resolved]
  - Faecaluria [Unknown]
  - Enterovesical fistula [Recovering/Resolving]
  - Renal scan abnormal [Unknown]
  - Pneumaturia [Unknown]

NARRATIVE: CASE EVENT DATE: 201408
